FAERS Safety Report 9257259 (Version 1)
Quarter: 2013Q1

REPORT INFORMATION
  Report Type: Spontaneous
  Country: US (occurrence: None)
  Receive Date: 20121212
  Receipt Date: 20121212
  Transmission Date: 20140127
  Serious: No
  Sender: FDA-Public Use
  Company Number: 1209USA006536

PATIENT
  Age: 48 Year
  Sex: Female

DRUGS (3)
  1. VICTRELIS (BOCEPREVIR) CAPSULE, 200MG [Suspect]
     Indication: HEPATITIS C
     Route: 048
     Dates: start: 20120525, end: 201208
  2. REBETOL (RIBAVIRIN) CAPSULE [Suspect]
     Route: 048
  3. PEGASYS [Suspect]

REACTIONS (5)
  - Urticaria [None]
  - Headache [None]
  - Mood swings [None]
  - Fatigue [None]
  - Abdominal pain upper [None]
